FAERS Safety Report 25959020 (Version 1)
Quarter: 2025Q4

REPORT INFORMATION
  Report Type: Report from Study
  Country: CA (occurrence: CA)
  Receive Date: 20251025
  Receipt Date: 20251025
  Transmission Date: 20260117
  Serious: Yes (Hospitalization)
  Sender: AMGEN
  Company Number: CA-AMGEN-CANSL2025206461

PATIENT
  Age: 62 Year
  Sex: Female

DRUGS (1)
  1. EVENITY [Suspect]
     Active Substance: ROMOSOZUMAB-AQQG
     Indication: Osteoporosis postmenopausal
     Dosage: 210 MILLIGRAM, QMO
     Route: 065

REACTIONS (7)
  - Abdominal pain upper [Not Recovered/Not Resolved]
  - Diarrhoea [Not Recovered/Not Resolved]
  - Injection site pain [Unknown]
  - Headache [Unknown]
  - Blood pressure increased [Not Recovered/Not Resolved]
  - Abdominal pain [Unknown]
  - Pelvic pain [Unknown]

NARRATIVE: CASE EVENT DATE: 20250101
